FAERS Safety Report 7542912-6 (Version None)
Quarter: 2011Q2

REPORT INFORMATION
  Report Type: 
  Country: None (occurrence: None)
  Receive Date: 20110606
  Receipt Date: 20110527
  Transmission Date: 20111010
  Serious: Yes (Hospitalization)
  Sender: FDA-Public Use
  Company Number: KV200900427

PATIENT
  Age: 58 Year
  Sex: Female
  Weight: 62.6 kg

DRUGS (16)
  1. MORPHINE SULFATE [Suspect]
     Indication: PAIN
     Dosage: 60 MG, BID, ORAL
     Route: 048
     Dates: start: 20071031, end: 20080501
  2. LIPITOR [Concomitant]
  3. CLONIDINE [Concomitant]
  4. AMLODIPINE [Concomitant]
  5. COREG [Concomitant]
  6. PREDNISONE [Concomitant]
  7. BUSPAR [Concomitant]
  8. NAPROXEN [Concomitant]
  9. RESTORIL [Concomitant]
  10. ROBITUSSIN AC (CODEINE PHOSPHATE, GUAIFENESIN, PHENIRAMINE MALEATE) [Concomitant]
  11. VICODIN [Concomitant]
  12. VISTARIL (HYDROXYZINE HYDROCHLORIDE) [Concomitant]
  13. PREMARIN [Concomitant]
  14. XANAX [Concomitant]
  15. PROZAC [Concomitant]
  16. ALBUTEROL [Concomitant]

REACTIONS (31)
  - ALTERED STATE OF CONSCIOUSNESS [None]
  - HEADACHE [None]
  - NAUSEA [None]
  - DIZZINESS [None]
  - OEDEMA PERIPHERAL [None]
  - HYPOTENSION [None]
  - HYPOTHYROIDISM [None]
  - ACCIDENTAL OVERDOSE [None]
  - SOMNOLENCE [None]
  - HYPERTENSION [None]
  - ACUTE STRESS DISORDER [None]
  - NEPHROLITHIASIS [None]
  - UNRESPONSIVE TO STIMULI [None]
  - CONFUSIONAL STATE [None]
  - PNEUMONIA [None]
  - MUSCLE SPASMS [None]
  - SINUS BRADYCARDIA [None]
  - LOSS OF CONSCIOUSNESS [None]
  - ANXIETY DISORDER [None]
  - DIARRHOEA [None]
  - SUICIDE ATTEMPT [None]
  - BRONCHITIS [None]
  - DEHYDRATION [None]
  - TACHYCARDIA [None]
  - DYSPEPSIA [None]
  - MEMORY IMPAIRMENT [None]
  - LETHARGY [None]
  - DYSARTHRIA [None]
  - DEPRESSED MOOD [None]
  - ANXIETY [None]
  - DYSPHAGIA [None]
